FAERS Safety Report 25448149 (Version 2)
Quarter: 2025Q3

REPORT INFORMATION
  Report Type: Spontaneous
  Country: US (occurrence: US)
  Receive Date: 20250617
  Receipt Date: 20250820
  Transmission Date: 20251020
  Serious: Yes (Other)
  Sender: COOPERSURGICAL
  Company Number: US-COOPERSURGICAL, INC.-2025CPS004807

PATIENT
  Age: 24 Year
  Sex: Female
  Weight: 75.737 kg

DRUGS (2)
  1. PARAGARD T 380A [Suspect]
     Active Substance: COPPER
     Indication: Contraception
     Route: 015
     Dates: start: 20141022
  2. BUPROPION [Concomitant]
     Active Substance: BUPROPION
     Dates: start: 201001

REACTIONS (19)
  - Abortion induced [Recovered/Resolved]
  - Device breakage [Recovered/Resolved]
  - Foreign body in reproductive tract [Recovered/Resolved]
  - Complication of device removal [Recovered/Resolved]
  - Embedded device [Recovered/Resolved]
  - Pregnancy with contraceptive device [Recovered/Resolved]
  - Drug ineffective [Unknown]
  - Pelvic organ prolapse [Not Recovered/Not Resolved]
  - Urinary incontinence [Not Recovered/Not Resolved]
  - Depression [Not Recovered/Not Resolved]
  - Anxiety [Not Recovered/Not Resolved]
  - Migraine [Unknown]
  - Scar [Not Recovered/Not Resolved]
  - Abdominal discomfort [Recovering/Resolving]
  - Pain [Unknown]
  - Muscle spasms [Unknown]
  - Heavy menstrual bleeding [Unknown]
  - Abnormal uterine bleeding [Unknown]
  - Device expulsion [Recovered/Resolved]

NARRATIVE: CASE EVENT DATE: 20141117
